FAERS Safety Report 6301170-0 (Version None)
Quarter: 2009Q3

REPORT INFORMATION
  Report Type: 
  Country: None (occurrence: None)
  Receive Date: 20090806
  Receipt Date: 20090806
  Transmission Date: 20100115
  Serious: Yes (Disabling)
  Sender: FDA-Public Use
  Company Number: None

PATIENT
  Age: 80 Year
  Sex: Male
  Weight: 65.318 kg

DRUGS (3)
  1. EXELON [Suspect]
     Indication: DEMENTIA ALZHEIMER'S TYPE
     Dosage: 4-6 24 HR PATCH
     Dates: start: 20090617, end: 20090710
  2. EXELON [Suspect]
     Indication: DEMENTIA ALZHEIMER'S TYPE
     Dosage: 4-6 24 HR PATCH
  3. . [Concomitant]

REACTIONS (5)
  - DEPRESSION [None]
  - FALL [None]
  - HYPOTENSION [None]
  - RIB FRACTURE [None]
  - TREMOR [None]
